FAERS Safety Report 18262325 (Version 1)
Quarter: 2020Q3

REPORT INFORMATION
  Report Type: Report from Study
  Country: FR (occurrence: FR)
  Receive Date: 20200914
  Receipt Date: 20200914
  Transmission Date: 20201105
  Serious: Yes (Death, Other)
  Sender: FDA-Public Use
  Company Number: FR-GLAXOSMITHKLINE-FR2020EME183164

PATIENT
  Sex: Male
  Weight: 60 kg

DRUGS (5)
  1. SALBUTAMOL [Concomitant]
     Active Substance: ALBUTEROL
  2. BECOTIDE [Concomitant]
     Active Substance: BECLOMETHASONE DIPROPIONATE
  3. BARACLUDE [Concomitant]
     Active Substance: ENTECAVIR
  4. LYRICA [Concomitant]
     Active Substance: PREGABALIN
  5. BELANTAMAB MAFODOTIN. [Suspect]
     Active Substance: BELANTAMAB MAFODOTIN
     Indication: PLASMA CELL MYELOMA
     Dosage: 2.5 MG/KG
     Dates: start: 20200804

REACTIONS (1)
  - Death [Fatal]
